FAERS Safety Report 24839107 (Version 1)
Quarter: 2025Q1

REPORT INFORMATION
  Report Type: Spontaneous
  Country: US (occurrence: US)
  Receive Date: 20250114
  Receipt Date: 20250114
  Transmission Date: 20250409
  Serious: No
  Sender: IBSA INSTITUT BIOCHIMIQUE
  Company Number: US-IBSA PHARMA INC.-2024IBS000069

PATIENT

DRUGS (1)
  1. TIROSINT-SOL [Suspect]
     Active Substance: LEVOTHYROXINE SODIUM
     Indication: Hypothyroidism
     Dosage: 137 MICROGRAM, QD
     Route: 048
     Dates: start: 2023

REACTIONS (19)
  - Vasodilatation [Unknown]
  - Muscular weakness [None]
  - Irregular breathing [None]
  - Feeling cold [None]
  - Diarrhoea [None]
  - Fatigue [None]
  - Chest pain [Unknown]
  - Increased appetite [Unknown]
  - Headache [None]
  - Anxiety [None]
  - Alopecia [None]
  - Muscle spasms [None]
  - Heart rate increased [None]
  - Tremor [None]
  - Irritability [None]
  - Nervousness [None]
  - Incorrect dose administered [Unknown]
  - Product packaging quantity issue [Unknown]
  - Product packaging difficult to open [Unknown]
